FAERS Safety Report 19143785 (Version 1)
Quarter: 2021Q2

REPORT INFORMATION
  Report Type: Report from Study
  Country: None (occurrence: DO)
  Receive Date: 20210416
  Receipt Date: 20210416
  Transmission Date: 20210717
  Serious: Yes (Other)
  Sender: FDA-Public Use
  Company Number: DO-ABBVIE-21K-279-3862490-00

PATIENT
  Age: 51 Year
  Sex: Female
  Weight: 72 kg

DRUGS (1)
  1. HUMIRA [Suspect]
     Active Substance: ADALIMUMAB
     Indication: UVEITIS
     Route: 058
     Dates: start: 20180425

REACTIONS (3)
  - Vision blurred [Recovering/Resolving]
  - Headache [Recovering/Resolving]
  - Uveitis [Recovering/Resolving]

NARRATIVE: CASE EVENT DATE: 202102
